FAERS Safety Report 9818920 (Version 1)
Quarter: 2014Q1

REPORT INFORMATION
  Report Type: Spontaneous
  Country: AU (occurrence: None)
  Receive Date: 20140114
  Receipt Date: 20140114
  Transmission Date: 20141002
  Serious: Yes (Hospitalization)
  Sender: FDA-Public Use
  Company Number: None

PATIENT
  Age: 3 Year
  Sex: Female
  Weight: 16.5 kg

DRUGS (4)
  1. DEXAMETHASONE [Suspect]
  2. VINCRISTINE SULFATE [Suspect]
  3. CEFTAZADIME [Concomitant]
  4. CIPROFLOXACIN [Concomitant]

REACTIONS (8)
  - Pyrexia [None]
  - Neutropenia [None]
  - Pseudomonas test positive [None]
  - Pneumoperitoneum [None]
  - Large intestine perforation [None]
  - Peritonitis [None]
  - Gastrointestinal inflammation [None]
  - Intestinal dilatation [None]
